FAERS Safety Report 7101187-2 (Version None)
Quarter: 2010Q4

REPORT INFORMATION
  Report Type: 
  Country: None (occurrence: None)
  Receive Date: 20101114
  Receipt Date: 20101102
  Transmission Date: 20110411
  Serious: Yes (Hospitalization, Other)
  Sender: FDA-Public Use
  Company Number: PHHY2010JP51583

PATIENT
  Sex: Female

DRUGS (5)
  1. FAMVIR [Suspect]
     Indication: HERPES ZOSTER
     Dosage: 500 MG, TID
     Route: 048
     Dates: start: 20100727, end: 20100801
  2. LOXOPROFEN SODIUM [Concomitant]
     Indication: PAIN
     Dosage: UNK
     Dates: start: 20100727
  3. MECOBALAMIN [Concomitant]
     Dosage: UNK
     Dates: start: 20100730
  4. REBAMIPIDE [Concomitant]
     Dosage: UNK
     Dates: start: 20100727
  5. DICLOFENAC SODIUM [Concomitant]
     Dosage: UNK
     Dates: start: 20100730

REACTIONS (17)
  - ABASIA [None]
  - ALTERED STATE OF CONSCIOUSNESS [None]
  - AMNESIA [None]
  - BEDRIDDEN [None]
  - BLOOD PRESSURE DIASTOLIC DECREASED [None]
  - BLOOD PRESSURE DIASTOLIC INCREASED [None]
  - BLOOD PRESSURE SYSTOLIC DECREASED [None]
  - BLOOD PRESSURE SYSTOLIC INCREASED [None]
  - DECREASED APPETITE [None]
  - DISORIENTATION [None]
  - DIZZINESS [None]
  - ENCEPHALOPATHY [None]
  - FALL [None]
  - FEELING ABNORMAL [None]
  - PAIN [None]
  - RASH [None]
  - RESPIRATORY RATE DECREASED [None]
